FAERS Safety Report 12446478 (Version 1)
Quarter: 2016Q2

REPORT INFORMATION
  Report Type: Report from Study
  Country: US (occurrence: US)
  Receive Date: 20160608
  Receipt Date: 20160608
  Transmission Date: 20160815
  Serious: Yes (Other)
  Sender: FDA-Public Use
  Company Number: US-BAXTER-2016BAX029837

PATIENT

DRUGS (13)
  1. DAPTOMYCIN. [Suspect]
     Active Substance: DAPTOMYCIN
     Indication: EVIDENCE BASED TREATMENT
  2. LEVOFLOXACIN. [Suspect]
     Active Substance: LEVOFLOXACIN
     Indication: BACTERIAL SEPSIS
     Route: 042
  3. VANCOMYCIN INJECTION, USP [Suspect]
     Active Substance: VANCOMYCIN
     Indication: BACTERIAL SEPSIS
     Route: 042
  4. METRONIDAZOLE INJECTION, USP [Suspect]
     Active Substance: METRONIDAZOLE
     Indication: EVIDENCE BASED TREATMENT
  5. MEROPENEM. [Suspect]
     Active Substance: MEROPENEM
     Indication: EVIDENCE BASED TREATMENT
  6. PIPERACILLIN/TAZOBACTAM [Suspect]
     Active Substance: PIPERACILLIN SODIUM\TAZOBACTAM SODIUM
     Indication: EVIDENCE BASED TREATMENT
  7. CEFEPIME [Suspect]
     Active Substance: CEFEPIME HYDROCHLORIDE
     Indication: ANTIBIOTIC THERAPY
     Route: 065
  8. PIPERACILLIN/TAZOBACTAM [Suspect]
     Active Substance: PIPERACILLIN SODIUM\TAZOBACTAM SODIUM
     Indication: BACTERIAL SEPSIS
     Route: 042
  9. METRONIDAZOLE INJECTION, USP [Suspect]
     Active Substance: METRONIDAZOLE
     Indication: BACTERIAL SEPSIS
     Route: 042
  10. DAPTOMYCIN. [Suspect]
     Active Substance: DAPTOMYCIN
     Indication: BACTERIAL SEPSIS
     Route: 042
  11. LEVOFLOXACIN. [Suspect]
     Active Substance: LEVOFLOXACIN
     Indication: EVIDENCE BASED TREATMENT
  12. VANCOMYCIN INJECTION, USP [Suspect]
     Active Substance: VANCOMYCIN
     Indication: EVIDENCE BASED TREATMENT
  13. MEROPENEM. [Suspect]
     Active Substance: MEROPENEM
     Indication: BACTERIAL SEPSIS
     Route: 042

REACTIONS (2)
  - Leukopenia [Unknown]
  - Rash [Unknown]
